FAERS Safety Report 14482495 (Version 1)
Quarter: 2018Q1

REPORT INFORMATION
  Report Type: Spontaneous
  Country: RO (occurrence: RO)
  Receive Date: 20180202
  Receipt Date: 20180202
  Transmission Date: 20180509
  Serious: Yes (Life-Threatening, Hospitalization, Disabling, Other)
  Sender: FDA-Public Use
  Company Number: RO-ABBVIE-18K-135-2245479-00

PATIENT
  Age: 35 Year
  Sex: Female
  Weight: 80 kg

DRUGS (1)
  1. HUMIRA [Suspect]
     Active Substance: ADALIMUMAB
     Indication: PSORIASIS
     Route: 058
     Dates: start: 20140714, end: 201711

REACTIONS (2)
  - Noninfective encephalitis [Unknown]
  - Meningitis tuberculous [Recovering/Resolving]

NARRATIVE: CASE EVENT DATE: 201711
